FAERS Safety Report 4949893-X (Version None)
Quarter: 2006Q1

REPORT INFORMATION
  Report Type: 
  Country: None (occurrence: None)
  Receive Date: 20060316
  Receipt Date: 20060228
  Transmission Date: 20060701
  Serious: Yes (Death)
  Sender: FDA-Public Use
  Company Number: S06-FRA-00829-01

PATIENT
  Age: 85 Year
  Sex: Female

DRUGS (6)
  1. MEMANTINE HCL [Suspect]
     Indication: DEMENTIA ALZHEIMER'S TYPE
     Dosage: 5 MG QD; PO
     Route: 048
     Dates: start: 20060111
  2. TRILEPTAL [Suspect]
     Indication: TEMPORAL LOBE EPILEPSY
     Dosage: 300 MG BID; PO
     Route: 048
     Dates: start: 20050501
  3. SERETIDE [Suspect]
     Dosage: 500 MCG, BID, IN
     Route: 042
     Dates: start: 20051121
  4. VITAMIN B-12 [Suspect]
     Indication: PERNICIOUS ANAEMIA
     Dosage: 1 UNK QMON; IM
     Route: 030
  5. TETAVAX (TETANUS ANTITOXIN) [Suspect]
     Dosage: 1 UNK; ONCE; SC
     Route: 058
     Dates: start: 20060118, end: 20060118
  6. MOVICOL [Suspect]
     Indication: CONSTIPATION

REACTIONS (2)
  - MYOCARDIAL INFARCTION [None]
  - PAIN [None]
